FAERS Safety Report 10923858 (Version 1)
Quarter: 2015Q1

REPORT INFORMATION
  Report Type: Spontaneous
  Country: US (occurrence: None)
  Receive Date: 20150129
  Receipt Date: 20150129
  Transmission Date: 20150721
  Serious: Yes (Hospitalization)
  Sender: FDA-Public Use
  Company Number: USW201408-000196

PATIENT
  Sex: Female

DRUGS (1)
  1. MYOBLOC [Suspect]
     Active Substance: RIMABOTULINUMTOXINB
     Indication: SALIVARY HYPERSECRETION
     Dosage: 2500 UNITS (ONE IN EACH PAROTID)

REACTIONS (5)
  - Dysphagia [None]
  - Asthenia [None]
  - Muscular weakness [None]
  - Dysarthria [None]
  - Gait disturbance [None]
